FAERS Safety Report 4866094-4 (Version None)
Quarter: 2005Q4

REPORT INFORMATION
  Report Type: 
  Country: None (occurrence: None)
  Receive Date: 20051221
  Receipt Date: 20051213
  Transmission Date: 20060501
  Serious: Yes (Hospitalization, Other)
  Sender: FDA-Public Use
  Company Number: HQWYE019715DEC05

PATIENT
  Age: 7 Year
  Sex: Male
  Weight: 24.3 kg

DRUGS (7)
  1. RAPAMUNE [Suspect]
     Indication: PROPHYLAXIS AGAINST TRANSPLANT REJECTION
     Dosage: 2.4 MG 2X PER 1 DAY, ORAL
     Route: 048
     Dates: start: 20030522, end: 20051001
  2. RAPAMUNE [Suspect]
     Indication: PROPHYLAXIS AGAINST TRANSPLANT REJECTION
     Dosage: 2.4 MG 2X PER 1 DAY, ORAL
     Route: 048
     Dates: start: 20050101
  3. PROGRAF [Concomitant]
  4. NIFEREX (POLYSACCHARIDE-IRON COMPLEX) [Concomitant]
  5. PREVACID [Concomitant]
  6. ADDERALL 10 [Concomitant]
  7. EPOGEN [Concomitant]

REACTIONS (4)
  - EPSTEIN-BARR VIRUS TEST POSITIVE [None]
  - HYPERPLASIA [None]
  - INFLAMMATION [None]
  - PHARYNGEAL OEDEMA [None]
